FAERS Safety Report 22384969 (Version 1)
Quarter: 2023Q2

REPORT INFORMATION
  Report Type: Spontaneous
  Country: US (occurrence: None)
  Receive Date: 20230528
  Receipt Date: 20230528
  Transmission Date: 20230721
  Serious: Yes (Other)
  Sender: FDA-Public Use
  Company Number: None

PATIENT
  Age: 30 Year
  Sex: Male
  Weight: 99 kg

DRUGS (11)
  1. DOXYCYCLINE HYCLATE [Suspect]
     Active Substance: DOXYCYCLINE HYCLATE
     Indication: Urinary tract infection
     Dosage: OTHER QUANTITY : 1 TABLET(S);?FREQUENCY : TWICE A DAY;?
     Route: 048
     Dates: start: 20230527, end: 20230527
  2. DOXYCYCLINE HYCLATE [Suspect]
     Active Substance: DOXYCYCLINE HYCLATE
     Indication: Testicular cyst
  3. LISINOPRIL [Concomitant]
     Active Substance: LISINOPRIL
  4. Amlodapine [Concomitant]
  5. Glycopyrollate [Concomitant]
  6. BUPROPION [Concomitant]
     Active Substance: BUPROPION
  7. TRUVADA [Concomitant]
     Active Substance: EMTRICITABINE\TENOFOVIR DISOPROXIL FUMARATE
  8. Chlorthidone [Concomitant]
  9. COREG [Concomitant]
     Active Substance: CARVEDILOL
  10. OMEPRAZOLE [Concomitant]
     Active Substance: OMEPRAZOLE
  11. Allergy 24 hr DayQuil [Concomitant]

REACTIONS (4)
  - Mood altered [None]
  - Hallucination [None]
  - Disturbance in attention [None]
  - Depression [None]

NARRATIVE: CASE EVENT DATE: 20230527
